FAERS Safety Report 13499383 (Version 1)
Quarter: 2017Q2

REPORT INFORMATION
  Report Type: Spontaneous
  Country: FR (occurrence: FR)
  Receive Date: 20170501
  Receipt Date: 20170501
  Transmission Date: 20170830
  Serious: Yes (Hospitalization)
  Sender: FDA-Public Use
  Company Number: FR-JNJFOC-20170422462

PATIENT
  Age: 52 Year
  Sex: Male

DRUGS (5)
  1. SERESTA [Suspect]
     Active Substance: OXAZEPAM
     Indication: PRODUCT USED FOR UNKNOWN INDICATION
     Dosage: SINGLE ADMINISTRATION VIA NASOGASTRIC TUBE
     Route: 045
     Dates: start: 20170329, end: 20170329
  2. NOZINAN [Suspect]
     Active Substance: LEVOMEPROMAZINE
     Indication: PRODUCT USED FOR UNKNOWN INDICATION
     Dosage: 4 MG PER HOUR
     Route: 065
     Dates: start: 20170401, end: 20170402
  3. PROPOFOL. [Suspect]
     Active Substance: PROPOFOL
     Indication: PRODUCT USED FOR UNKNOWN INDICATION
     Dosage: 150 MG/HR
     Route: 065
     Dates: start: 20170329, end: 20170401
  4. DIAZEPAM. [Suspect]
     Active Substance: DIAZEPAM
     Indication: PRODUCT USED FOR UNKNOWN INDICATION
     Route: 042
     Dates: start: 20170331, end: 20170401
  5. HALDOL [Suspect]
     Active Substance: HALOPERIDOL
     Indication: PRODUCT USED FOR UNKNOWN INDICATION
     Dosage: 10 DROPS VIA NASOGASTRIC TUBE
     Route: 048
     Dates: start: 20170330, end: 20170401

REACTIONS (5)
  - Renal failure [Not Recovered/Not Resolved]
  - Respiratory acidosis [Not Recovered/Not Resolved]
  - Hyperkalaemia [Not Recovered/Not Resolved]
  - Rhabdomyolysis [Not Recovered/Not Resolved]
  - Hyperthermia [Not Recovered/Not Resolved]

NARRATIVE: CASE EVENT DATE: 20170402
